FAERS Safety Report 17913025 (Version 3)
Quarter: 2020Q3

REPORT INFORMATION
  Report Type: Report from Study
  Country: CL (occurrence: CL)
  Receive Date: 20200618
  Receipt Date: 20200707
  Transmission Date: 20201103
  Serious: Yes (Other)
  Sender: FDA-Public Use
  Company Number: NVSC2020CL119580

PATIENT
  Age: 32 Year
  Sex: Female

DRUGS (5)
  1. KISQALI [Suspect]
     Active Substance: RIBOCICLIB
     Dosage: 600 MG
     Route: 048
     Dates: start: 20200414
  2. KISQALI [Suspect]
     Active Substance: RIBOCICLIB
     Dosage: 600 MG
     Route: 048
     Dates: start: 20200414
  3. KISQALI [Suspect]
     Active Substance: RIBOCICLIB
     Indication: BREAST CANCER
     Dosage: 600 MG
     Route: 048
     Dates: start: 20191019
  4. KISQALI [Suspect]
     Active Substance: RIBOCICLIB
     Dosage: 600 MG
     Route: 065
     Dates: start: 20200414
  5. FULVESTRANT. [Suspect]
     Active Substance: FULVESTRANT
     Indication: PRODUCT USED FOR UNKNOWN INDICATION
     Dosage: UNK
     Route: 065

REACTIONS (18)
  - Anisocytosis [Unknown]
  - Poikilocytosis [Unknown]
  - Therapeutic response decreased [Unknown]
  - Aspartate aminotransferase [Unknown]
  - Haemoglobin decreased [Unknown]
  - Neutrophil count decreased [Unknown]
  - Blood lactate dehydrogenase [Unknown]
  - Elliptocytosis [Unknown]
  - Abdominal pain [Unknown]
  - Lymphocyte count decreased [Unknown]
  - Constipation [Not Recovered/Not Resolved]
  - Red cell distribution width increased [Unknown]
  - Bundle branch block right [Unknown]
  - Haematocrit decreased [Unknown]
  - Rouleaux formation [Unknown]
  - White blood cell count decreased [Unknown]
  - Red blood cell sedimentation rate decreased [Unknown]
  - Blood alkaline phosphatase [Unknown]

NARRATIVE: CASE EVENT DATE: 20200414
